FAERS Safety Report 9671235 (Version 1)
Quarter: 2013Q4

REPORT INFORMATION
  Report Type: Spontaneous
  Country: FR (occurrence: FR)
  Receive Date: 20131106
  Receipt Date: 20131106
  Transmission Date: 20140711
  Serious: Yes (Hospitalization)
  Sender: FDA-Public Use
  Company Number: FR-ACTELION-A-CH2013-90603

PATIENT
  Age: 75 Year
  Sex: Female

DRUGS (15)
  1. TRACLEER [Suspect]
     Indication: PULMONARY ARTERIAL HYPERTENSION
     Dosage: 62.5 MG, BID
     Route: 048
     Dates: start: 201011, end: 201309
  2. TRACLEER [Suspect]
     Dosage: UNK UNK, BID
     Route: 048
     Dates: start: 2013, end: 2013
  3. REVATIO [Concomitant]
     Dosage: 20 MG, UNK
  4. CORTANCYL [Concomitant]
     Dosage: 5 MG, UNK
  5. LAROXYL [Concomitant]
  6. AMLOR [Concomitant]
     Dosage: 10 MG, UNK
  7. DOLIPRANE [Concomitant]
  8. LASILIX [Concomitant]
     Dosage: 20 MG, UNK
  9. ALDACTONE [Concomitant]
     Dosage: 25 MG, UNK
  10. FLECAINE [Concomitant]
     Dosage: 200 MG, UNK
  11. INEXIUM [Concomitant]
     Dosage: 40 MG, UNK
  12. TOPALGIC LP [Concomitant]
     Dosage: 150 MG, UNK
  13. NUCTALON [Concomitant]
  14. DIFFU K [Concomitant]
  15. CALCIDOSE VITAMINE D [Concomitant]

REACTIONS (9)
  - Hepatitis [Recovering/Resolving]
  - Cholestasis [Recovering/Resolving]
  - Alanine aminotransferase increased [Recovering/Resolving]
  - Aspartate aminotransferase increased [Recovering/Resolving]
  - Bilirubin conjugated increased [Recovering/Resolving]
  - Blood alkaline phosphatase increased [Recovering/Resolving]
  - Blood bilirubin increased [Recovering/Resolving]
  - Gamma-glutamyltransferase increased [Recovering/Resolving]
  - Cell death [Recovering/Resolving]
